FAERS Safety Report 5688383-6 (Version None)
Quarter: 2008Q1

REPORT INFORMATION
  Report Type: 
  Country: None (occurrence: None)
  Receive Date: 20080331
  Receipt Date: 20080321
  Transmission Date: 20080703
  Serious: Yes (Other)
  Sender: FDA-Public Use
  Company Number: PHEH2008US02048

PATIENT
  Age: 68 Year
  Sex: Female

DRUGS (5)
  1. RECLAST [Suspect]
     Indication: OSTEOPOROSIS
     Dosage: 5 MG, ONCE YEARLY
     Dates: start: 20080208, end: 20080208
  2. VITAMIN D [Concomitant]
     Dosage: 15000 IU, BID
  3. CALCIUM [Concomitant]
     Dosage: 750 MG, BID
  4. NEXIUM [Concomitant]
     Dosage: 40 MG, QD
  5. SYNTHROID [Concomitant]
     Dosage: 112 UG, QD

REACTIONS (5)
  - ARTHRALGIA [None]
  - CATARACT [None]
  - DIZZINESS [None]
  - MYALGIA [None]
  - VISUAL ACUITY REDUCED [None]
